FAERS Safety Report 7271996 (Version 5)
Quarter: 2015Q4

REPORT INFORMATION
  Report Type: Spontaneous
  Country: US (occurrence: US)
  Receive Date: 20100205
  Receipt Date: 20151207
  Transmission Date: 20160305
  Serious: Yes (Hospitalization, Disabling, Other)
  Sender: FDA-Public Use
  Company Number: US-BAYER-201012843NA

PATIENT
  Age: 30 Year
  Sex: Female
  Weight: 82 kg

DRUGS (13)
  1. OXYCODONE [Concomitant]
     Active Substance: OXYCODONE
  2. NEURONTIN [Concomitant]
     Active Substance: GABAPENTIN
  3. HYDREA [Concomitant]
     Active Substance: HYDROXYUREA
  4. HYDROCODONE [Concomitant]
     Active Substance: HYDROCODONE
  5. LORCET [Concomitant]
     Active Substance: ACETAMINOPHEN\HYDROCODONE BITARTRATE
     Indication: PRODUCT USED FOR UNKNOWN INDICATION
     Dosage: 5 MG (DAILY DOSE), PRN,
     Dates: start: 20080312
  6. HYDROXYUREA. [Concomitant]
     Active Substance: HYDROXYUREA
  7. LORTAB [Concomitant]
     Active Substance: ACETAMINOPHEN\HYDROCODONE BITARTRATE
  8. YAZ [Suspect]
     Active Substance: DROSPIRENONE\ETHINYL ESTRADIOL
     Indication: PRODUCT USED FOR UNKNOWN INDICATION
     Dosage: AS USED DOSE: UNK
     Route: 048
     Dates: start: 200512, end: 200803
  9. LOESTRIN 1.5/30 [Concomitant]
     Indication: PRODUCT USED FOR UNKNOWN INDICATION
     Dosage: 1.5 MG (DAILY DOSE), ,
     Dates: start: 20080312
  10. KLONOPIN [Concomitant]
     Active Substance: CLONAZEPAM
  11. YASMIN [Suspect]
     Active Substance: DROSPIRENONE\ETHINYL ESTRADIOL
     Indication: PRODUCT USED FOR UNKNOWN INDICATION
     Dosage: AS USED DOSE: UNK
     Route: 048
     Dates: start: 200512, end: 200803
  12. GABAPENTIN. [Concomitant]
     Active Substance: GABAPENTIN
  13. FENTANYL. [Concomitant]
     Active Substance: FENTANYL

REACTIONS (8)
  - Gangrene [None]
  - Pain in extremity [None]
  - Gangrene [Recovered/Resolved with Sequelae]
  - Hypoaesthesia [None]
  - Localised infection [None]
  - Peripheral ischaemia [None]
  - Peripheral artery thrombosis [None]
  - Embolism arterial [None]

NARRATIVE: CASE EVENT DATE: 2008
